FAERS Safety Report 7634184-9 (Version None)
Quarter: 2011Q3

REPORT INFORMATION
  Report Type: 
  Country: None (occurrence: None)
  Receive Date: 20110725
  Receipt Date: 20110713
  Transmission Date: 20111222
  Serious: Yes (Other)
  Sender: FDA-Public Use
  Company Number: CHPA2011JP09342

PATIENT
  Sex: Male
  Weight: 73 kg

DRUGS (8)
  1. BETAMETHASONE BUTYRATE PROPIONATE [Concomitant]
     Indication: ECZEMA
     Dosage: 5 G, UNK
     Route: 065
     Dates: start: 20050101
  2. ASPIRIN [Concomitant]
     Indication: MYOCARDIAL INFARCTION
     Dosage: 100 MG, UNK
     Route: 048
  3. TOPSYM [Concomitant]
     Indication: ECZEMA
     Dosage: 2 G, UNK
     Route: 065
     Dates: start: 20050101
  4. PURSENNID [Suspect]
     Indication: CONSTIPATION
     Dosage: 24 MG, QD
     Route: 048
     Dates: start: 20101001, end: 20101110
  5. TAMSULOSIN HCL [Concomitant]
     Indication: BENIGN PROSTATIC HYPERPLASIA
     Dosage: 0.2 MG, UNK
     Route: 048
     Dates: start: 20050101
  6. CRESTOR [Concomitant]
     Indication: HYPERLIPIDAEMIA
     Dosage: 2.5 MG, UNK
     Route: 048
  7. CALBLOCK [Concomitant]
     Indication: HYPERTENSION
     Dosage: 8 MG, UNK
     Route: 048
  8. ALMETA [Concomitant]
     Indication: ECZEMA
     Dosage: 1 G, UNK
     Route: 065
     Dates: start: 20050101

REACTIONS (3)
  - DRUG ERUPTION [None]
  - GENERALISED ERYTHEMA [None]
  - EOSINOPHIL PERCENTAGE INCREASED [None]
